FAERS Safety Report 18721332 (Version 5)
Quarter: 2022Q4

REPORT INFORMATION
  Report Type: Spontaneous
  Country: US (occurrence: US)
  Receive Date: 20210109
  Receipt Date: 20221230
  Transmission Date: 20230113
  Serious: Yes (Hospitalization)
  Sender: FDA-Public Use
  Company Number: US-TEVA-2021-US-1866816

PATIENT
  Age: 52 Year
  Sex: Female

DRUGS (5)
  1. TREPROSTINIL [Suspect]
     Active Substance: TREPROSTINIL
     Indication: Pulmonary arterial hypertension
     Dosage: DOSE OR AMOUNT: 20NG/KG/MIN?FREQUENCY: 30ML/24HRS, CONTINUOUS
     Route: 042
     Dates: start: 20191024
  2. TREPROSTINIL [Suspect]
     Active Substance: TREPROSTINIL
     Dosage: 34NG/KG/MIN
     Route: 042
     Dates: start: 20220501
  3. TREPROSTINIL [Suspect]
     Active Substance: TREPROSTINIL
     Dosage: 52 NG/KG/MIN, CONTINUOUS, 2.5 MG/ML
     Route: 042
     Dates: start: 202208
  4. TREPROSTINIL [Suspect]
     Active Substance: TREPROSTINIL
     Dosage: 50 NG/KG/MIN
     Route: 065
  5. TREPROSTINIL [Suspect]
     Active Substance: TREPROSTINIL
     Dosage: 2.5ML
     Route: 042
     Dates: start: 201912

REACTIONS (7)
  - Chronic right ventricular failure [Unknown]
  - Diarrhoea [Not Recovered/Not Resolved]
  - Dizziness [Unknown]
  - Chest pain [Unknown]
  - Paranasal sinus discomfort [Unknown]
  - Restlessness [Unknown]
  - Headache [Unknown]

NARRATIVE: CASE EVENT DATE: 20201214
